FAERS Safety Report 23891711 (Version 2)
Quarter: 2024Q3

REPORT INFORMATION
  Report Type: Spontaneous
  Country: US (occurrence: US)
  Receive Date: 20240524
  Receipt Date: 20240821
  Transmission Date: 20241016
  Serious: Yes (Hospitalization, Other)
  Sender: BRISTOL MYERS SQUIBB
  Company Number: US-BRISTOL-MYERS SQUIBB COMPANY-2024-078077

PATIENT
  Age: 62 Year
  Sex: Female

DRUGS (1)
  1. ORENCIA [Suspect]
     Active Substance: ABATACEPT
     Indication: Product used for unknown indication
     Dosage: FREQUENCY: INJECT 125 MG (1 SYRINGE) SUBCUTANEOUSLY ONCE A WEEK (STORE IN REFRIGERATOR IMMEDIATELY)
     Route: 058

REACTIONS (3)
  - Influenza [Unknown]
  - Sepsis [Unknown]
  - Chronic obstructive pulmonary disease [Recovering/Resolving]

NARRATIVE: CASE EVENT DATE: 20231201
